FAERS Safety Report 25213579 (Version 1)
Quarter: 2025Q2

REPORT INFORMATION
  Report Type: Spontaneous
  Country: US (occurrence: None)
  Receive Date: 20250417
  Receipt Date: 20250417
  Transmission Date: 20250716
  Serious: No
  Sender: FDA-CTU
  Company Number: None

PATIENT
  Age: 74 Year
  Sex: Male
  Weight: 94 kg

DRUGS (1)
  1. EMPAGLIFLOZIN [Suspect]
     Active Substance: EMPAGLIFLOZIN
     Indication: Diabetes mellitus
     Dosage: FREQUENCY : DAILY;?
     Route: 048

REACTIONS (7)
  - Fungaemia [None]
  - Urinary tract infection [None]
  - Lung transplant [None]
  - Nephrolithiasis [None]
  - Purulence [None]
  - Candida test positive [None]
  - Urosepsis [None]

NARRATIVE: CASE EVENT DATE: 20240620
